FAERS Safety Report 19072017 (Version 3)
Quarter: 2021Q2

REPORT INFORMATION
  Report Type: Spontaneous
  Country: US (occurrence: US)
  Receive Date: 20210330
  Receipt Date: 20210507
  Transmission Date: 20210717
  Serious: Yes (Death, Hospitalization, Other)
  Sender: FDA-Public Use
  Company Number: US-BOIRON INC.-2021BOR00041

PATIENT
  Sex: Male

DRUGS (3)
  1. ARNICA MONTANA 30C [Suspect]
     Active Substance: HOMEOPATHICS
     Indication: CONTUSION
     Dosage: UNK
     Route: 048
     Dates: start: 202002
  2. ARNICA MONTANA 30C [Suspect]
     Active Substance: HOMEOPATHICS
     Dosage: UNK
     Route: 048
     Dates: start: 202002
  3. VITAMINS [Concomitant]
     Active Substance: VITAMINS

REACTIONS (12)
  - Somnolence [Not Recovered/Not Resolved]
  - Renal failure [Not Recovered/Not Resolved]
  - Overdose [Unknown]
  - Fatigue [Not Recovered/Not Resolved]
  - Feeling cold [Unknown]
  - Asthenia [Unknown]
  - Poisoning [Not Recovered/Not Resolved]
  - Gait inability [Not Recovered/Not Resolved]
  - Confusional state [Unknown]
  - Organ failure [Fatal]
  - Delirium [Not Recovered/Not Resolved]
  - Diarrhoea [Not Recovered/Not Resolved]

NARRATIVE: CASE EVENT DATE: 202103
